FAERS Safety Report 15945753 (Version 1)
Quarter: 2019Q1

REPORT INFORMATION
  Report Type: Spontaneous
  Country: SI (occurrence: SI)
  Receive Date: 20190211
  Receipt Date: 20190211
  Transmission Date: 20190417
  Serious: Yes (Other)
  Sender: FDA-Public Use
  Company Number: SI-ACCORD-105910

PATIENT
  Age: 51 Year
  Sex: Male

DRUGS (2)
  1. HELEX [Concomitant]
     Active Substance: ALPRAZOLAM
     Dosage: 0,5 MG
  2. FLUOROURACIL ACCORD [Suspect]
     Active Substance: FLUOROURACIL
     Indication: COLORECTAL CANCER
     Dosage: STRENGHT: 50MG/ML
     Route: 042
     Dates: start: 20180514, end: 20180514

REACTIONS (1)
  - Infusion related reaction [Recovering/Resolving]

NARRATIVE: CASE EVENT DATE: 20180514
